FAERS Safety Report 14434757 (Version 1)
Quarter: 2018Q1

REPORT INFORMATION
  Report Type: Spontaneous
  Country: US (occurrence: US)
  Receive Date: 20180125
  Receipt Date: 20180125
  Transmission Date: 20180509
  Serious: Yes (Other)
  Sender: FDA-Public Use
  Company Number: US-BAXTER-2018BAX002867

PATIENT
  Age: 1 Day
  Sex: Female

DRUGS (1)
  1. 5% DEXTROSE INJECTION, USP [Suspect]
     Active Substance: DEXTROSE
     Indication: NUTRITIONAL SUPPLEMENTATION
     Dosage: VIA SIGMA SPECTRUM PUMP
     Route: 042
     Dates: start: 20171227, end: 20171227

REACTIONS (6)
  - Device infusion issue [Unknown]
  - Incorrect drug administration rate [Unknown]
  - Incorrect dose administered [Unknown]
  - Device issue [Unknown]
  - Neonatal hyponatraemia [Recovered/Resolved]
  - Blood glucose increased [Recovered/Resolved]

NARRATIVE: CASE EVENT DATE: 20171227
